FAERS Safety Report 12353250 (Version 4)
Quarter: 2016Q3

REPORT INFORMATION
  Report Type: Report from Study
  Country: CA (occurrence: CA)
  Receive Date: 20160510
  Receipt Date: 20160902
  Transmission Date: 20161109
  Serious: Yes (Other)
  Sender: FDA-Public Use
  Company Number: PHHY2016CA062782

PATIENT
  Sex: Male

DRUGS (3)
  1. KEYTRUDA [Concomitant]
     Active Substance: PEMBROLIZUMAB
     Indication: PRODUCT USED FOR UNKNOWN INDICATION
     Route: 041
  2. TAFINLAR [Suspect]
     Active Substance: DABRAFENIB MESYLATE
     Indication: METASTATIC MALIGNANT MELANOMA
     Dosage: 300 MG, QD
     Route: 048
     Dates: start: 20160203
  3. MEKINIST [Suspect]
     Active Substance: TRAMETINIB DIMETHYL SULFOXIDE
     Indication: METASTATIC MALIGNANT MELANOMA
     Dosage: 2 MG, QD
     Route: 048
     Dates: start: 20160215

REACTIONS (19)
  - Tremor [Unknown]
  - Dizziness [Recovering/Resolving]
  - Recurrent cancer [Unknown]
  - Chromaturia [Unknown]
  - Testicular swelling [Unknown]
  - Hyperhidrosis [Unknown]
  - Asthenia [Unknown]
  - Basal cell carcinoma [Unknown]
  - Sinusitis [Unknown]
  - Haematochezia [Unknown]
  - Mental impairment [Unknown]
  - Skin disorder [Unknown]
  - Constipation [Unknown]
  - Second primary malignancy [Unknown]
  - Bladder spasm [Unknown]
  - Blood urine present [Unknown]
  - Cystitis [Unknown]
  - Skin warm [Unknown]
  - Photophobia [Unknown]
